FAERS Safety Report 8518080-0 (Version None)
Quarter: 2012Q3

REPORT INFORMATION
  Report Type: 
  Country: None (occurrence: None)
  Receive Date: 20120718
  Receipt Date: 20110907
  Transmission Date: 20120928
  Serious: No
  Sender: FDA-Public Use
  Company Number: US-BRISTOL-MYERS SQUIBB COMPANY-16042012

PATIENT
  Age: 72 Year
  Sex: Male
  Weight: 99 kg

DRUGS (14)
  1. AMLODIPINE [Concomitant]
     Indication: HYPERTENSION
     Dosage: ONG
  2. MULTI-VITAMIN [Concomitant]
     Dosage: ONG
  3. FENOFIBRATE [Concomitant]
     Dosage: ONG
  4. GLIPIZIDE [Concomitant]
     Indication: DIABETES MELLITUS
     Dosage: ONG
  5. SYMBICORT [Concomitant]
     Indication: CHRONIC OBSTRUCTIVE PULMONARY DISEASE
     Dosage: ONG
  6. DALIRESP [Interacting]
     Indication: CHRONIC OBSTRUCTIVE PULMONARY DISEASE
     Route: 048
  7. FLOMAX [Concomitant]
     Indication: BENIGN PROSTATIC HYPERPLASIA
     Dosage: ONG
  8. GLUCOSAMINE [Concomitant]
     Dosage: ONG
  9. COUMADIN [Suspect]
     Indication: HEART RATE IRREGULAR
  10. SPIRIVA [Concomitant]
     Indication: CHRONIC OBSTRUCTIVE PULMONARY DISEASE
     Dosage: ONG
  11. CARVEDILOL [Concomitant]
     Indication: HYPERTENSION
     Dosage: 25MG:ONG
  12. METFORMIN HYDROCHLORIDE [Concomitant]
     Indication: DIABETES MELLITUS
     Dosage: 1000MG: ONG
  13. PROAIR HFA [Concomitant]
     Indication: CHRONIC OBSTRUCTIVE PULMONARY DISEASE
     Dosage: PROAIR:ONG
  14. ALLOPURINOL [Concomitant]
     Indication: GOUT
     Dosage: ONG

REACTIONS (6)
  - DIARRHOEA [None]
  - DECREASED APPETITE [None]
  - DRUG INTERACTION [None]
  - CONTUSION [None]
  - WEIGHT DECREASED [None]
  - PROTHROMBIN TIME PROLONGED [None]
